FAERS Safety Report 4761225-9 (Version None)
Quarter: 2005Q3

REPORT INFORMATION
  Report Type: 
  Country: None (occurrence: None)
  Receive Date: 20050902
  Receipt Date: 20050902
  Transmission Date: 20060218
  Serious: No
  Sender: FDA-Public Use
  Company Number: None

PATIENT
  Sex: Female
  Weight: 49.8957 kg

DRUGS (3)
  1. WELLBUTRIN XL [Suspect]
     Indication: DEPRESSION
     Dosage: 150 MG -3 PILLS /DAY
     Dates: start: 20000101, end: 20050101
  2. ESTROSTEP [Concomitant]
  3. CELEXA [Concomitant]

REACTIONS (1)
  - ALOPECIA [None]
